FAERS Safety Report 17492840 (Version 2)
Quarter: 2020Q3

REPORT INFORMATION
  Report Type: Report from Study
  Country: BR (occurrence: BR)
  Receive Date: 20200303
  Receipt Date: 20200805
  Transmission Date: 20201102
  Serious: No
  Sender: FDA-Public Use
  Company Number: BR-JNJFOC-20191012438

PATIENT
  Age: 7 Decade
  Sex: Male
  Weight: 72 kg

DRUGS (3)
  1. RIFAMPICIN [Concomitant]
     Active Substance: RIFAMPIN
     Indication: PRODUCT USED FOR UNKNOWN INDICATION
     Dates: start: 201906
  2. STELARA [Suspect]
     Active Substance: USTEKINUMAB
     Route: 058
  3. STELARA [Suspect]
     Active Substance: USTEKINUMAB
     Indication: PSORIASIS
     Route: 058
     Dates: start: 20190207, end: 20200721

REACTIONS (7)
  - Drug ineffective [Unknown]
  - Liver disorder [Unknown]
  - Mycobacterium tuberculosis complex test positive [Unknown]
  - Product prescribing error [Unknown]
  - Peripheral swelling [Unknown]
  - Off label use [Unknown]
  - Psoriasis [Recovered/Resolved]

NARRATIVE: CASE EVENT DATE: 2019
